FAERS Safety Report 14561663 (Version 2)
Quarter: 2021Q4

REPORT INFORMATION
  Report Type: Spontaneous
  Country: US (occurrence: US)
  Receive Date: 20180222
  Receipt Date: 20211011
  Transmission Date: 20220303
  Serious: Yes (Disabling, Other)
  Sender: FDA-Public Use
  Company Number: US-TEVA-2018-US-862593

PATIENT
  Age: 54 Year
  Sex: Female
  Weight: 134.72 kg

DRUGS (21)
  1. DOCETAXEL [Suspect]
     Active Substance: DOCETAXEL
     Indication: Triple positive breast cancer
     Dosage: NUMBER OF CYCLE: 06, FREQUENCY: EVERY THREE WEEKS, DOSAGE: 75 MG/M2
     Route: 042
     Dates: start: 20150403, end: 20150707
  2. CARBOPLATIN [Suspect]
     Active Substance: CARBOPLATIN
     Indication: Triple positive breast cancer
     Dosage: NUMBER OF CYCLE: 06, FREQUENCY: EVERY THREE WEEKS, DOSAGE: UNKNOWN
     Route: 042
     Dates: start: 20150403, end: 20150707
  3. TAXOTERE [Suspect]
     Active Substance: DOCETAXEL
     Indication: Triple positive breast cancer
     Dosage: NUMBER OF CYCLE: 06, FREQUENCY: EVERY THREE WEEKS, DOSAGE: UNKNOWN
     Route: 042
     Dates: start: 20150403, end: 20150707
  4. DOCETAXEL [Suspect]
     Active Substance: DOCETAXEL
     Indication: Triple positive breast cancer
     Dosage: NUMBER OF CYCLE: 06, FREQUENCY: EVERY THREE WEEKS, DOSAGE: UNKNOWN
     Route: 042
     Dates: start: 20150403, end: 20150707
  5. DOCETAXEL [Suspect]
     Active Substance: DOCETAXEL
     Indication: Triple positive breast cancer
     Dosage: NUMBER OF CYCLE: 06, FREQUENCY: EVERY THREE WEEKS, DOSAGE: UNKNOWN
     Route: 042
     Dates: start: 20150403, end: 20150707
  6. DOCETAXEL [Suspect]
     Active Substance: DOCETAXEL
     Indication: Triple positive breast cancer
     Dosage: NUMBER OF CYCLE: 06, FREQUENCY: EVERY THREE WEEKS, DOSAGE: UNKNOWN
     Route: 042
     Dates: start: 20150403, end: 20150707
  7. DOCETAXEL [Suspect]
     Active Substance: DOCETAXEL
     Indication: Triple positive breast cancer
     Dosage: NUMBER OF CYCLE: 06, FREQUENCY: EVERY THREE WEEKS, DOSAGE: UNKNOWN
     Route: 042
     Dates: start: 20150403, end: 20150707
  8. DOCETAXEL [Suspect]
     Active Substance: DOCETAXEL
     Indication: Triple positive breast cancer
     Dosage: NUMBER OF CYCLE: 06, FREQUENCY: EVERY THREE WEEKS, DOSAGE: UNKNOWN
     Route: 042
     Dates: start: 20150403, end: 20150707
  9. HERCEPTIN [Suspect]
     Active Substance: TRASTUZUMAB
     Indication: Triple positive breast cancer
     Dosage: NUMBER OF CYCLE: 06, FREQUENCY: EVERY THREE WEEKS, DOSAGE: 803 MG
     Route: 042
     Dates: start: 20150403, end: 2015
  10. TRIAMTERENE AND HYDROCHLOROTHIAZIDE [Concomitant]
     Active Substance: HYDROCHLOROTHIAZIDE\TRIAMTERENE
     Dosage: 37.5-25 MG
     Route: 048
     Dates: start: 2009
  11. FAMOTIDINE [Concomitant]
     Active Substance: FAMOTIDINE
     Route: 042
  12. HEPARIN [Concomitant]
     Active Substance: HEPARIN SODIUM
     Dosage: 500 UNITS
  13. ONDANSETRON [Concomitant]
     Active Substance: ONDANSETRON
     Route: 042
  14. ONDANSETRON [Concomitant]
     Active Substance: ONDANSETRON
     Dosage: TAKE 1 TABLET BY MOUTH EVERY 8 HOURS AS NEEDED
     Route: 048
     Dates: start: 20150327, end: 20151030
  15. SODIUM CHLORIDE [Concomitant]
     Active Substance: SODIUM CHLORIDE
     Dosage: INTRACATHETER
  16. DEXAMETHASONE [Concomitant]
     Active Substance: DEXAMETHASONE
     Dosage: TAKE 2 TABLETS BY MOUTH IN AM AND DINNER THE DAY BEFORE THE DAY OF AND THE DAY AFTER
     Dates: start: 20150402, end: 20150807
  17. LIDOCAINE\PRILOCAINE [Concomitant]
     Active Substance: LIDOCAINE\PRILOCAINE
     Dosage: 2.5-2.5%; APPLY TO PORT 30 MINUTES PRIOR TO CHEMOTHERAPY
     Route: 061
     Dates: start: 20150402, end: 20160219
  18. LORAZEPAM [Concomitant]
     Active Substance: LORAZEPAM
     Dosage: TAKE 1 TABLET BY MOUTH EVERY 6 HOURS AS NEEDED
     Route: 048
     Dates: start: 20150327, end: 20160916
  19. OXYCODONE [Concomitant]
     Active Substance: OXYCODONE
     Dosage: TAKE 1 TABLET PO Q 4-6 HOURS PRN PAIN
     Route: 048
     Dates: start: 20150518, end: 20150807
  20. PEGFILGRASTIM [Concomitant]
     Active Substance: PEGFILGRASTIM
     Dosage: INJECT 6 MG SUBCUTANEOUSLY THE DAY AFTER CHEMOTHERAPY EVERY 14 DAYS
     Route: 058
     Dates: start: 20150506, end: 20150807
  21. PROCHLORPERAZINE [Concomitant]
     Active Substance: PROCHLORPERAZINE
     Dosage: TAKE 1 TABLET BY MOUTH EVERY 6 HOURS AS NEEDED (NAUSEA)
     Dates: start: 20150327, end: 20151030

REACTIONS (10)
  - Alopecia totalis [Unknown]
  - Madarosis [Unknown]
  - Alopecia areata [Unknown]
  - Neuropathy peripheral [Not Recovered/Not Resolved]
  - Hair texture abnormal [Unknown]
  - Hair colour changes [Unknown]
  - Nausea [Recovered/Resolved]
  - Taste disorder [Recovered/Resolved]
  - Bone pain [Unknown]
  - Menopause [Not Recovered/Not Resolved]

NARRATIVE: CASE EVENT DATE: 20150101
